FAERS Safety Report 11213808 (Version 1)
Quarter: 2015Q2

REPORT INFORMATION
  Report Type: Other
  Country: US (occurrence: US)
  Receive Date: 20150623
  Receipt Date: 20150623
  Transmission Date: 20150821
  Serious: Yes (Other)
  Sender: FDA-Public Use
  Company Number: US-ORIT LABORATORIES LLC-1040137

PATIENT
  Age: 80 Year
  Sex: Female
  Weight: 90.91 kg

DRUGS (1)
  1. ERGOCALCIFEROL. [Suspect]
     Active Substance: ERGOCALCIFEROL
     Route: 048
     Dates: start: 20150407, end: 20150526

REACTIONS (1)
  - Alopecia [Unknown]

NARRATIVE: CASE EVENT DATE: 20150611
